FAERS Safety Report 20199931 (Version 1)
Quarter: 2021Q4

REPORT INFORMATION
  Report Type: Spontaneous
  Country: GB (occurrence: GB)
  Receive Date: 20211217
  Receipt Date: 20211217
  Transmission Date: 20220303
  Serious: Yes (Other)
  Sender: FDA-Public Use
  Company Number: None

PATIENT
  Age: 69 Year
  Sex: Female
  Weight: 45 kg

DRUGS (3)
  1. PENICILLIN V [Suspect]
     Active Substance: PENICILLIN V
     Indication: Ill-defined disorder
     Dosage: UNK
     Route: 065
     Dates: start: 20211210
  2. AMLODIPINE [Concomitant]
     Active Substance: AMLODIPINE BESYLATE
     Indication: Ill-defined disorder
     Dosage: 1 DOSAGE FORM (TAKE ONE DAILY)
     Route: 065
     Dates: start: 20211210
  3. MOMETASONE [Concomitant]
     Active Substance: MOMETASONE
     Indication: Ill-defined disorder
     Dosage: UNK, (TWO SPRAYS IN BOTH NOSTRILS TWICE DAILY FOR 14)
     Route: 065
     Dates: start: 20210925, end: 20211009

REACTIONS (1)
  - Rash pruritic [Recovered/Resolved]

NARRATIVE: CASE EVENT DATE: 20211210
